FAERS Safety Report 14853321 (Version 3)
Quarter: 2018Q3

REPORT INFORMATION
  Report Type: Report from Study
  Country: FR (occurrence: FR)
  Receive Date: 20180507
  Receipt Date: 20180724
  Transmission Date: 20181010
  Serious: Yes (Death, Hospitalization, Other)
  Sender: FDA-Public Use
  Company Number: FR-JAZZ-2018-FR-007124

PATIENT

DRUGS (1)
  1. DEFITELIO [Suspect]
     Active Substance: DEFIBROTIDE SODIUM
     Indication: PRODUCT USED FOR UNKNOWN INDICATION
     Dosage: 25 MG/KG, QD
     Dates: start: 20140830, end: 20140831

REACTIONS (6)
  - Escherichia infection [Unknown]
  - Multiple organ dysfunction syndrome [Unknown]
  - Hypertension [Unknown]
  - Septic shock [Fatal]
  - Gastrointestinal infection [Fatal]
  - Cardiac arrest [Fatal]

NARRATIVE: CASE EVENT DATE: 20140831
